FAERS Safety Report 5876670-8 (Version None)
Quarter: 2008Q3

REPORT INFORMATION
  Report Type: 
  Country: None (occurrence: None)
  Receive Date: 20080910
  Receipt Date: 20080901
  Transmission Date: 20090109
  Serious: Yes (Other)
  Sender: FDA-Public Use
  Company Number: CH-WYE-G02100308

PATIENT
  Sex: Female

DRUGS (4)
  1. EFFEXOR [Suspect]
     Indication: DEPRESSION
     Route: 064
     Dates: start: 20070613, end: 20080201
  2. EFFEXOR [Suspect]
     Route: 064
     Dates: start: 20080202, end: 20080215
  3. EFFEXOR [Suspect]
     Route: 063
     Dates: start: 20080227, end: 20080228
  4. EFFEXOR [Suspect]
     Route: 064
     Dates: start: 20080216, end: 20080227

REACTIONS (4)
  - DRUG EXPOSURE VIA BREAST MILK [None]
  - DRUG WITHDRAWAL SYNDROME NEONATAL [None]
  - HIGH-PITCHED CRYING [None]
  - TREMOR NEONATAL [None]
